FAERS Safety Report 7557053-1 (Version None)
Quarter: 2011Q2

REPORT INFORMATION
  Report Type: 
  Country: None (occurrence: None)
  Receive Date: 20110620
  Receipt Date: 20110617
  Transmission Date: 20111010
  Serious: Yes (Death, Other)
  Sender: FDA-Public Use
  Company Number: PHFR2011GB03135

PATIENT
  Sex: Male

DRUGS (4)
  1. CLOZAPINE [Suspect]
     Indication: SCHIZOPHRENIA
     Dosage: 600 MG, QD
     Dates: start: 20081015
  2. CLOZAPINE [Suspect]
     Dosage: 650 MG, UNK
     Route: 048
  3. AMISULPRIDE [Suspect]
     Dosage: 600 MG, QD
     Route: 048
     Dates: start: 20090901
  4. CLOZAPINE [Suspect]
     Dosage: 600 MG, UNK
     Route: 048

REACTIONS (8)
  - OVERWEIGHT [None]
  - DELUSION [None]
  - ARTERIOSCLEROSIS CORONARY ARTERY [None]
  - PSYCHOTIC DISORDER [None]
  - CARDIAC FAILURE [None]
  - SEDATION [None]
  - SALIVARY HYPERSECRETION [None]
  - MALAISE [None]
